FAERS Safety Report 9993910 (Version 1)
Quarter: 2014Q1

REPORT INFORMATION
  Report Type: Spontaneous
  Country: US (occurrence: US)
  Receive Date: 20140310
  Receipt Date: 20140310
  Transmission Date: 20141002
  Serious: No
  Sender: FDA-Public Use
  Company Number: US-009507513-1403USA003156

PATIENT
  Sex: 0

DRUGS (1)
  1. INTRONA [Suspect]

REACTIONS (3)
  - Chest discomfort [Unknown]
  - Rhinorrhoea [Unknown]
  - Nasal congestion [Unknown]
